FAERS Safety Report 8084262 (Version 3)
Quarter: 2014Q2

REPORT INFORMATION
  Report Type: Spontaneous
  Country: US (occurrence: US)
  Receive Date: 20110810
  Receipt Date: 20140630
  Transmission Date: 20141212
  Serious: Yes (Death)
  Sender: FDA-Public Use
  Company Number: US-GLAXOSMITHKLINE-A0811023A

PATIENT
  Sex: Male

DRUGS (1)
  1. AVANDIA [Suspect]
     Indication: DIABETES MELLITUS
     Dosage: 4MG PER DAY
     Route: 048
     Dates: start: 200506, end: 200609

REACTIONS (5)
  - Cardiac arrest [Fatal]
  - Acute myocardial infarction [Fatal]
  - Cardiac failure congestive [Unknown]
  - Cardiomyopathy [Fatal]
  - Arteriosclerosis coronary artery [Unknown]
